FAERS Safety Report 11871505 (Version 1)
Quarter: 2015Q4

REPORT INFORMATION
  Report Type: Spontaneous
  Country: US (occurrence: US)
  Receive Date: 20151228
  Receipt Date: 20151228
  Transmission Date: 20160305
  Serious: Yes (Hospitalization, Other)
  Sender: FDA-Public Use
  Company Number: US-ASTELLAS-2015US046638

PATIENT
  Age: 82 Year
  Sex: Male

DRUGS (1)
  1. XTANDI [Suspect]
     Active Substance: ENZALUTAMIDE
     Indication: PROSTATE CANCER
     Route: 065

REACTIONS (7)
  - Malignant neoplasm progression [Unknown]
  - Diarrhoea [Unknown]
  - Incoherent [Unknown]
  - Blood glucose decreased [Unknown]
  - Dehydration [Unknown]
  - Abasia [Unknown]
  - Blood potassium increased [Unknown]

NARRATIVE: CASE EVENT DATE: 201511
